FAERS Safety Report 7733412-9 (Version None)
Quarter: 2011Q3

REPORT INFORMATION
  Report Type: 
  Country: None (occurrence: None)
  Receive Date: 20110902
  Receipt Date: 20110902
  Transmission Date: 20111222
  Serious: No
  Sender: FDA-Public Use
  Company Number: None

PATIENT
  Age: 68 Year
  Sex: Female
  Weight: 73.4827 kg

DRUGS (5)
  1. HYDROCORTISONE CREAM [Concomitant]
  2. GLIMEPIRDE 1 MG. TABLET [Suspect]
     Dosage: 1 MG.
  3. NYSTATIN [Concomitant]
  4. METFORMIN HCL [Suspect]
     Indication: DIABETES MELLITUS
     Dosage: 500 ER
  5. NYSTOP [Concomitant]

REACTIONS (3)
  - PRURITUS [None]
  - RASH [None]
  - DRUG EFFECT DECREASED [None]
